FAERS Safety Report 4917585-9 (Version None)
Quarter: 2006Q1

REPORT INFORMATION
  Report Type: 
  Country: None (occurrence: None)
  Receive Date: 20060221
  Receipt Date: 20060209
  Transmission Date: 20060701
  Serious: Yes (Other)
  Sender: FDA-Public Use
  Company Number: US-MERCK-0602USA03330

PATIENT
  Age: 39 Year
  Sex: Male

DRUGS (2)
  1. VIOXX [Suspect]
     Indication: INTERVERTEBRAL DISC PROTRUSION
     Route: 048
     Dates: start: 20000101, end: 20010615
  2. VIOXX [Suspect]
     Indication: PAIN
     Route: 048
     Dates: start: 20000101, end: 20010615

REACTIONS (1)
  - MYOCARDIAL INFARCTION [None]
